FAERS Safety Report 10260729 (Version 3)
Quarter: 2014Q4

REPORT INFORMATION
  Report Type: Report from Study
  Country: US (occurrence: US)
  Receive Date: 20140626
  Receipt Date: 20141020
  Transmission Date: 20150528
  Serious: Yes (Death, Hospitalization, Other)
  Sender: FDA-Public Use
  Company Number: US-BIOGENIDEC-2014BI060288

PATIENT
  Age: 49 Year
  Sex: Female

DRUGS (1)
  1. TYSABRI [Suspect]
     Active Substance: NATALIZUMAB
     Indication: MULTIPLE SCLEROSIS
     Route: 042
     Dates: start: 20140430, end: 20140630

REACTIONS (7)
  - Malaise [Unknown]
  - Neoplasm malignant [Unknown]
  - Aphasia [Unknown]
  - Asthenia [Unknown]
  - Death [Fatal]
  - Multiple sclerosis [Fatal]
  - Central nervous system lymphoma [Fatal]

NARRATIVE: CASE EVENT DATE: 2014
